FAERS Safety Report 11831871 (Version 1)
Quarter: 2015Q4

REPORT INFORMATION
  Report Type: Spontaneous
  Country: US (occurrence: None)
  Receive Date: 20151211
  Receipt Date: 20151211
  Transmission Date: 20160305
  Serious: Yes (Hospitalization)
  Sender: FDA-Public Use
  Company Number: None

PATIENT
  Age: 65 Year
  Sex: Female

DRUGS (3)
  1. TEGRETOL [Suspect]
     Active Substance: CARBAMAZEPINE
     Indication: TRIGEMINAL NEURALGIA
     Dates: start: 20140619, end: 20140718
  2. VALACYCLOVIR [Concomitant]
     Active Substance: VALACYCLOVIR HYDROCHLORIDE
  3. DOXYCYCLINE. [Concomitant]
     Active Substance: DOXYCYCLINE

REACTIONS (9)
  - Diarrhoea [None]
  - Aspartate aminotransferase increased [None]
  - Pancreatitis [None]
  - Pyrexia [None]
  - Alanine aminotransferase increased [None]
  - Condition aggravated [None]
  - Nausea [None]
  - Hepatotoxicity [None]
  - Rash [None]

NARRATIVE: CASE EVENT DATE: 20140704
